FAERS Safety Report 5814215-9 (Version None)
Quarter: 2008Q3

REPORT INFORMATION
  Report Type: 
  Country: None (occurrence: None)
  Receive Date: 20080715
  Receipt Date: 20080701
  Transmission Date: 20090109
  Serious: Yes (Hospitalization)
  Sender: FDA-Public Use
  Company Number: 2008BI006658

PATIENT
  Age: 70 Year
  Sex: Female

DRUGS (2)
  1. AVONEX [Suspect]
     Indication: MULTIPLE SCLEROSIS
     Dosage: IM; 30 UG; QW; IM
     Route: 030
     Dates: start: 20000601
  2. STEROIDS [Concomitant]

REACTIONS (4)
  - BACK INJURY [None]
  - FALL [None]
  - HAEMOLYTIC ANAEMIA [None]
  - TYPE 1 DIABETES MELLITUS [None]
